FAERS Safety Report 8611855-9 (Version None)
Quarter: 2012Q3

REPORT INFORMATION
  Report Type: 
  Country: None (occurrence: None)
  Receive Date: 20120822
  Receipt Date: 20120816
  Transmission Date: 20120928
  Serious: Yes (Hospitalization)
  Sender: FDA-Public Use
  Company Number: CN-ROCHE-1104641

PATIENT
  Sex: Female
  Weight: 50 kg

DRUGS (3)
  1. HERCEPTIN [Suspect]
     Indication: BREAST CANCER
     Dosage: MOST RECENT DOSE PRIOR TO AE ONSET ON 08/AUG/2012
     Route: 042
     Dates: start: 20120505, end: 20120814
  2. PACLITAXEL [Suspect]
     Indication: BREAST CANCER
     Dosage: MOST RECENT DOSE PRIOR TO AE ONSET ON 07/AUG/2012
     Route: 042
     Dates: start: 20120505, end: 20120807
  3. EPIRUBICIN HYDROCHLORIDE [Suspect]
     Indication: BREAST CANCER
     Dosage: MOST RECENT DOSE PRIOR TO AE ONSET ON 30/JUL/2012
     Route: 042
     Dates: start: 20120505, end: 20120814

REACTIONS (1)
  - UPPER GASTROINTESTINAL HAEMORRHAGE [None]
